FAERS Safety Report 10253349 (Version 2)
Quarter: 2014Q2

REPORT INFORMATION
  Report Type: Spontaneous
  Country: US (occurrence: US)
  Receive Date: 20140623
  Receipt Date: 20140623
  Transmission Date: 20141212
  Serious: No
  Sender: FDA-Public Use
  Company Number: US-SHIONOGI, INC-2014000184

PATIENT
  Sex: Female

DRUGS (1)
  1. OSPHENA [Suspect]
     Indication: DYSPAREUNIA
     Dosage: UNK, ONCE DAILY AT NIGHT
     Route: 048
     Dates: start: 201401

REACTIONS (4)
  - Dysgeusia [Unknown]
  - Skin odour abnormal [Unknown]
  - Breath odour [Unknown]
  - Night sweats [Unknown]
